FAERS Safety Report 11243128 (Version 1)
Quarter: 2015Q3

REPORT INFORMATION
  Report Type: Spontaneous
  Country: US (occurrence: None)
  Receive Date: 20150702
  Receipt Date: 20150702
  Transmission Date: 20151125
  Serious: Yes (Other)
  Sender: FDA-Public Use
  Company Number: None

PATIENT
  Age: 63 Year
  Sex: Female
  Weight: 69.85 kg

DRUGS (7)
  1. LEVOTHYROXINE 0.75 MG [Concomitant]
  2. ASPIRIN 81 MG [Concomitant]
     Active Substance: ASPIRIN
  3. LYRICA [Concomitant]
     Active Substance: PREGABALIN
  4. METAMUSIL [Concomitant]
  5. SUCRALFATE. [Suspect]
     Active Substance: SUCRALFATE
     Indication: ACIDOSIS
     Route: 048
  6. SUCRALFATE. [Suspect]
     Active Substance: SUCRALFATE
     Indication: DIARRHOEA
     Route: 048
  7. CIRCUPLEX [Concomitant]

REACTIONS (6)
  - Tongue blistering [None]
  - Angular cheilitis [None]
  - Lip dry [None]
  - Dry mouth [None]
  - Glossodynia [None]
  - Oral discomfort [None]
